FAERS Safety Report 23166730 (Version 1)
Quarter: 2023Q4

REPORT INFORMATION
  Report Type: Spontaneous
  Country: DE (occurrence: DE)
  Receive Date: 20231109
  Receipt Date: 20231109
  Transmission Date: 20240109
  Serious: Yes (Other)
  Sender: FDA-Public Use
  Company Number: DE-ITM SOLUCIN GMBH-ITMDE2023000189

PATIENT
  Sex: Male

DRUGS (2)
  1. LUTETIUM CHLORIDE LU-177 [Suspect]
     Active Substance: LUTETIUM CHLORIDE LU-177
     Indication: Radioisotope therapy
     Dosage: UNK
     Route: 050
  2. LUTETIUM OXODOTREOTIDE LU-177 [Suspect]
     Active Substance: LUTETIUM OXODOTREOTIDE LU-177
     Indication: Hormone-refractory prostate cancer
     Dosage: UNK
     Route: 042

REACTIONS (1)
  - Pathological fracture [Unknown]
